FAERS Safety Report 10015191 (Version 2)
Quarter: 2014Q1

REPORT INFORMATION
  Report Type: Spontaneous
  Country: US (occurrence: US)
  Receive Date: 20140317
  Receipt Date: 20140320
  Transmission Date: 20141002
  Serious: Yes (Death, Hospitalization, Other)
  Sender: FDA-Public Use
  Company Number: US-BAXTER-2014BAX012787

PATIENT
  Age: 69 Year
  Sex: Female

DRUGS (4)
  1. DIANEAL LOW CALCIUM [Suspect]
     Indication: PERITONEAL DIALYSIS
     Dosage: 2 BAGS
     Route: 033
  2. DIANEAL LOW CALCIUM [Suspect]
     Dosage: 2 BAGS
     Route: 033
     Dates: start: 2012, end: 20140311
  3. DIANEAL LOW CALCIUM [Suspect]
     Indication: PERITONEAL DIALYSIS
     Dosage: 2 BAGS
     Route: 033
  4. DIANEAL LOW CALCIUM [Suspect]
     Dosage: 2 BAGS
     Route: 033
     Dates: start: 2012, end: 20140311

REACTIONS (8)
  - Myocardial infarction [Fatal]
  - Unresponsive to stimuli [Unknown]
  - Blood glucose increased [Unknown]
  - Coronary artery occlusion [Unknown]
  - Heart valve stenosis [Unknown]
  - Ejection fraction abnormal [Unknown]
  - Cardiac arrest [Unknown]
  - Infection [Unknown]
